FAERS Safety Report 8045072-0 (Version None)
Quarter: 2012Q1

REPORT INFORMATION
  Report Type: 
  Country: None (occurrence: None)
  Receive Date: 20120113
  Receipt Date: 20120110
  Transmission Date: 20120608
  Serious: Yes (Other)
  Sender: FDA-Public Use
  Company Number: PHHY2011JP111364

PATIENT
  Age: 84 Year
  Sex: Female

DRUGS (3)
  1. RADIOTHERAPY [Concomitant]
  2. ZOMETA [Suspect]
     Indication: METASTASES TO BONE
     Route: 042
  3. LETROZOLE [Suspect]

REACTIONS (2)
  - OSTEONECROSIS OF JAW [None]
  - IMPAIRED HEALING [None]
